FAERS Safety Report 5723316-5 (Version None)
Quarter: 2008Q2

REPORT INFORMATION
  Report Type: 
  Country: None (occurrence: None)
  Receive Date: 20080430
  Receipt Date: 20080422
  Transmission Date: 20081010
  Serious: Yes (Hospitalization)
  Sender: FDA-Public Use
  Company Number: PHHO2007DE09744

PATIENT
  Sex: Female
  Weight: 73 kg

DRUGS (2)
  1. ZOLEDRONIC ACID [Suspect]
     Indication: BREAST CANCER
     Dosage: 4MG EVERY 3 MONTHS
     Route: 042
     Dates: start: 20070425
  2. HERCEPTIN [Suspect]
     Indication: BREAST CANCER
     Dosage: 530MG DAILY
     Route: 042
     Dates: start: 20070426, end: 20070426

REACTIONS (7)
  - ABDOMINAL PAIN UPPER [None]
  - BONE PAIN [None]
  - CHILLS [None]
  - GASTRITIS [None]
  - INFECTION [None]
  - METASTASES TO LIVER [None]
  - PYREXIA [None]
